FAERS Safety Report 9522633 (Version 2)
Quarter: 2013Q3

REPORT INFORMATION
  Report Type: Spontaneous
  Country: GB (occurrence: GB)
  Receive Date: 20130913
  Receipt Date: 20130913
  Transmission Date: 20140515
  Serious: Yes (Other)
  Sender: FDA-Public Use
  Company Number: GB-PFIZER INC-2013225092

PATIENT
  Age: 68 Year
  Sex: Female
  Weight: 140 kg

DRUGS (6)
  1. PREMARIN [Suspect]
     Dosage: 0.625 MG, 1X/DAY
     Dates: start: 20101005, end: 20130702
  2. CO-CODAMOL [Concomitant]
     Dosage: 30/500 1-2 3 TIMES DAILY
  3. ATORVASTATIN [Concomitant]
     Dosage: 10 MG, 1X/DAY
  4. BISOPROLOL [Concomitant]
     Dosage: 2 MG, 1X/DAY
  5. AMLODIPINE [Concomitant]
     Dosage: 3 MG, 1X/DAY
  6. BENDROFLUMETHIAZIDE [Concomitant]
     Dosage: 2.5 MG, 1X/DAY

REACTIONS (2)
  - Pruritus [Recovered/Resolved]
  - Hot flush [Recovered/Resolved]
